FAERS Safety Report 9486890 (Version 2)
Quarter: 2013Q3

REPORT INFORMATION
  Report Type: Spontaneous
  Country: US (occurrence: None)
  Receive Date: 20130827
  Receipt Date: 20130828
  Transmission Date: 20140515
  Serious: Yes (Other)
  Sender: FDA-Public Use
  Company Number: 2013-382

PATIENT
  Age: 73 Year
  Sex: Female

DRUGS (8)
  1. PRIALT [Suspect]
     Indication: PAIN
     Dosage: ONCE AN HR INTRATHECAL
  2. PRIALT [Suspect]
     Indication: PAIN
     Dosage: ONCE AN HR INTRATHECAL
  3. FENTANYL [Suspect]
     Indication: PAIN
     Dosage: ONCE AN HR INTRATHECAL
  4. FENTANYL [Suspect]
     Indication: PAIN
     Dosage: ONCE AN HR INTRATHECAL
  5. DILAUDID [Suspect]
     Indication: PAIN
     Dosage: ONE AN HR INTRATHECAL
  6. DILAUDID [Suspect]
     Indication: PAIN
     Dosage: ONE AN HR INTRATHECAL
  7. BUPIVACAINE HYDROCHLORIDE [Suspect]
     Indication: PAIN
     Dosage: ONCE AN HR INTRATHECAL
  8. BUPIVACAINE HYDROCHLORIDE [Suspect]
     Indication: PAIN
     Dosage: ONCE AN HR INTRATHECAL

REACTIONS (6)
  - Traumatic lung injury [None]
  - Dyspnoea [None]
  - Abdominal pain upper [None]
  - Back pain [None]
  - Iatrogenic injury [None]
  - Pneumothorax [None]
